FAERS Safety Report 6091356-5 (Version None)
Quarter: 2009Q1

REPORT INFORMATION
  Report Type: 
  Country: None (occurrence: None)
  Receive Date: 20090219
  Receipt Date: 20090219
  Transmission Date: 20090719
  Serious: Yes (Hospitalization, Other)
  Sender: FDA-Public Use
  Company Number: None

PATIENT
  Sex: Female
  Weight: 57.8 kg

DRUGS (6)
  1. ABRAXANE [Suspect]
     Indication: METASTATIC NEOPLASM
     Dosage: 168 MG D1,D8, D15/CYCLE 042
     Dates: start: 20080709, end: 20080813
  2. VANDETANIB [Suspect]
     Indication: METASTATIC NEOPLASM
     Dosage: 100 MG QD X 28 DAYS 047
     Dates: start: 20080709, end: 20080819
  3. FENTANYL TRANSDERMAL SYSTEM [Concomitant]
  4. ADVIL [Concomitant]
  5. MEGACE [Concomitant]
  6. TOPROL-XL [Concomitant]

REACTIONS (3)
  - FATIGUE [None]
  - NEUTROPENIA [None]
  - PULMONARY EMBOLISM [None]
